FAERS Safety Report 7525782-1 (Version None)
Quarter: 2011Q2

REPORT INFORMATION
  Report Type: 
  Country: None (occurrence: None)
  Receive Date: 20110606
  Receipt Date: 20110523
  Transmission Date: 20111010
  Serious: Yes (Hospitalization, Other)
  Sender: FDA-Public Use
  Company Number: PHEH2004US12084

PATIENT
  Sex: Male
  Weight: 80.726 kg

DRUGS (26)
  1. INTERFERON ALFA [Concomitant]
     Indication: MULTIPLE MYELOMA
     Dosage: 6 MU EOD/SQ
     Dates: start: 19950101, end: 19970528
  2. PROCRIT [Concomitant]
     Dates: start: 19970101
  3. ZANTAC [Concomitant]
     Dosage: 150 MG, QD
     Route: 048
     Dates: start: 19970101
  4. AREDIA [Suspect]
     Indication: BONE DISORDER
     Dosage: 60 MG, QMO
     Dates: start: 19950313
  5. NEURONTIN [Concomitant]
     Indication: NEUROPATHY PERIPHERAL
     Dosage: 400 MG, QD
     Dates: start: 19991104
  6. REGLAN [Concomitant]
  7. RITALIN [Concomitant]
     Dosage: 5-10 MG BID
     Route: 048
     Dates: start: 19970101
  8. MORPHINE SULFATE [Concomitant]
     Indication: MYALGIA
     Dosage: 30 MG 1-4 TABS DAILY PRN
     Dates: start: 19950101
  9. NORVASC [Concomitant]
  10. AREDIA [Suspect]
     Dosage: 90 MG, QMO
     Dates: start: 19951227, end: 20000519
  11. ZOMETA [Suspect]
     Dosage: UNK, QMO
     Dates: start: 20010101
  12. THALIDOMIDE [Concomitant]
     Indication: MULTIPLE MYELOMA
     Dosage: 300 MG, QD
     Dates: start: 19980101
  13. WELLBUTRIN [Concomitant]
     Dosage: 450 MG, QD
     Dates: start: 19991104
  14. SENOKOT [Concomitant]
     Route: 048
     Dates: start: 19970101
  15. THALIDOMIDE [Concomitant]
     Dosage: 100 MG, QD
     Dates: start: 19991101
  16. VIAGRA [Concomitant]
     Indication: LIBIDO DECREASED
     Dates: start: 19980528
  17. ZOLOFT [Concomitant]
     Indication: DEPRESSION
     Dosage: 200 MG, QD
     Route: 048
     Dates: start: 19950101
  18. PAXIL [Concomitant]
     Dosage: 10 MG, UNK
     Dates: start: 19991123
  19. KLONOPIN [Concomitant]
     Dosage: 0.5 MG, Q12H
     Dates: start: 19991123
  20. EPOGEN [Concomitant]
     Indication: ANAEMIA
     Dosage: 10,000 U TIW
     Dates: start: 19960926
  21. VIAGRA [Concomitant]
     Dosage: 50 MG, PRN
     Dates: start: 19991123
  22. ZESTRIL [Concomitant]
     Indication: HYPERTENSION
     Dosage: 5 MG, UNK
     Route: 048
     Dates: start: 19991004
  23. SERZONE [Concomitant]
     Dosage: 1TAB QAM 1/2 TAB QHS
     Dates: start: 20000222
  24. THALIDOMIDE [Concomitant]
     Dosage: 400 MG, QD
     Dates: start: 19990301
  25. COLACE [Concomitant]
     Route: 048
     Dates: start: 19970101
  26. COUMADIN [Concomitant]

REACTIONS (66)
  - DISEASE PROGRESSION [None]
  - NEOPLASM MALIGNANT [None]
  - TOOTHACHE [None]
  - SINUSITIS [None]
  - TOOTH FRACTURE [None]
  - LIBIDO DECREASED [None]
  - DENTAL PLAQUE [None]
  - EJECTION FRACTION DECREASED [None]
  - NEURITIS [None]
  - CELLULITIS [None]
  - ORAL PAIN [None]
  - FATIGUE [None]
  - DENTAL CARIES [None]
  - SPINAL OSTEOARTHRITIS [None]
  - ANAL FISSURE [None]
  - MYELOMALACIA [None]
  - CARDIOMYOPATHY [None]
  - HEART RATE DECREASED [None]
  - DENTAL PROSTHESIS USER [None]
  - ORAL INFECTION [None]
  - NEUROPATHY PERIPHERAL [None]
  - PARAESTHESIA [None]
  - PAIN IN EXTREMITY [None]
  - NAUSEA [None]
  - HAIR GROWTH ABNORMAL [None]
  - INTERVERTEBRAL DISC DEGENERATION [None]
  - SCOLIOSIS [None]
  - DEVICE FAILURE [None]
  - STREPTOCOCCAL BACTERAEMIA [None]
  - OSTEOMYELITIS [None]
  - DYSAESTHESIA [None]
  - PLASMACYTOMA [None]
  - ANDROGENS DECREASED [None]
  - MONOCYTE COUNT INCREASED [None]
  - INTERVERTEBRAL DISC DISPLACEMENT [None]
  - MENISCUS LESION [None]
  - TENDERNESS [None]
  - DENTAL FISTULA [None]
  - SEPSIS [None]
  - DYSPNOEA [None]
  - ALOPECIA [None]
  - NECK PAIN [None]
  - HAEMOGLOBIN DECREASED [None]
  - DEEP VEIN THROMBOSIS [None]
  - ABDOMINAL PAIN UPPER [None]
  - VIRAL INFECTION [None]
  - BLOOD CREATININE INCREASED [None]
  - HAEMATOCRIT DECREASED [None]
  - OSTEONECROSIS OF JAW [None]
  - BLOOD IMMUNOGLOBULIN G INCREASED [None]
  - ENCOPRESIS [None]
  - DEPRESSION [None]
  - BACTERIAL INFECTION [None]
  - GRANULOCYTE COUNT DECREASED [None]
  - EOSINOPHIL COUNT INCREASED [None]
  - HYPOAESTHESIA [None]
  - PRIMARY SEQUESTRUM [None]
  - EXTRADURAL ABSCESS [None]
  - PULMONARY FUNCTION TEST ABNORMAL [None]
  - OROPHARYNGEAL PAIN [None]
  - CERVICAL SPINAL STENOSIS [None]
  - INTERVERTEBRAL DISC PROTRUSION [None]
  - GINGIVAL RECESSION [None]
  - AMYLOIDOSIS [None]
  - AORTIC DILATATION [None]
  - JOINT EFFUSION [None]
